FAERS Safety Report 5906302-1 (Version None)
Quarter: 2008Q4

REPORT INFORMATION
  Report Type: 
  Country: None (occurrence: None)
  Receive Date: 20081002
  Receipt Date: 20080520
  Transmission Date: 20090506
  Serious: Yes (Other)
  Sender: FDA-Public Use
  Company Number: US-ABBOTT-08P-163-0455292-00

PATIENT
  Age: 51 Year
  Sex: Female

DRUGS (2)
  1. TRICOR [Suspect]
     Indication: BLOOD CHOLESTEROL INCREASED
  2. TRICOR [Suspect]
     Indication: BLOOD TRIGLYCERIDES INCREASED

REACTIONS (6)
  - ABNORMAL DREAMS [None]
  - COUGH [None]
  - FATIGUE [None]
  - HEADACHE [None]
  - MYALGIA [None]
  - RHABDOMYOLYSIS [None]
